FAERS Safety Report 4462129-1 (Version None)
Quarter: 2004Q3

REPORT INFORMATION
  Report Type: 
  Country: None (occurrence: None)
  Receive Date: 20040927
  Receipt Date: 20040927
  Transmission Date: 20050211
  Serious: Yes (Hospitalization)
  Sender: FDA-Public Use
  Company Number: None

PATIENT
  Sex: Male

DRUGS (6)
  1. OXYCODONE AND ACETAMINOPHEN [Suspect]
  2. IBUPROFEN [Concomitant]
  3. PROPOXYPHENE/APAP [Concomitant]
  4. LOVASTATIN [Concomitant]
  5. FLUPHENAZINE [Concomitant]
  6. DECANOATE [Concomitant]

REACTIONS (2)
  - SLEEP DISORDER [None]
  - SUICIDE ATTEMPT [None]
